FAERS Safety Report 6471339-3 (Version None)
Quarter: 2009Q4

REPORT INFORMATION
  Report Type: 
  Country: None (occurrence: None)
  Receive Date: 20091203
  Receipt Date: 20080130
  Transmission Date: 20100525
  Serious: Yes (Hospitalization)
  Sender: FDA-Public Use
  Company Number: NO-ELI_LILLY_AND_COMPANY-NO200801006831

PATIENT
  Sex: Male

DRUGS (1)
  1. GEMZAR [Suspect]
     Indication: NEOPLASM MALIGNANT
     Dosage: UNK, UNKNOWN
     Route: 042
     Dates: end: 20071201

REACTIONS (3)
  - DYSPNOEA [None]
  - PLEURAL EFFUSION [None]
  - PULMONARY OEDEMA [None]
